FAERS Safety Report 22045061 (Version 1)
Quarter: 2023Q1

REPORT INFORMATION
  Report Type: Spontaneous
  Country: US (occurrence: None)
  Receive Date: 20230227
  Receipt Date: 20230227
  Transmission Date: 20230417
  Serious: Yes (Other)
  Sender: FDA-Public Use
  Company Number: None

PATIENT
  Age: 64 Year
  Sex: Female

DRUGS (16)
  1. HUMIRA [Suspect]
     Active Substance: ADALIMUMAB
     Indication: Rheumatoid arthritis
     Dosage: 40 MG EVERY OTHER WEEK SUBCUTANEOUS
     Route: 058
  2. GABAPENTIN [Concomitant]
     Active Substance: GABAPENTIN
  3. Aspirin 81mg EC Low Dose Tablets [Concomitant]
  4. Potassium CL 10meq ER Capsules [Concomitant]
  5. LISINOPRIL [Concomitant]
     Active Substance: LISINOPRIL
  6. Claritin 10mg Tablets [Concomitant]
  7. Pravastatin 40mg Tablets [Concomitant]
  8. HYDROCHLOROTHIAZIDE [Concomitant]
     Active Substance: HYDROCHLOROTHIAZIDE
  9. Zetia 10mg Tablets [Concomitant]
  10. AMLODIPINE BESYLATE [Concomitant]
     Active Substance: AMLODIPINE BESYLATE
  11. Singulair 10mg Tablets [Concomitant]
  12. Cyanocobalamin 1000mcg/ml Inj, 1ml [Concomitant]
  13. Vitamin D2 2,000 Unit Capsules [Concomitant]
  14. METFORMIN HYDROCHLORIDE [Concomitant]
     Active Substance: METFORMIN HYDROCHLORIDE
  15. Ozempic 1mg per dose (1x4mg Pen) [Concomitant]
  16. Lasix 20mg Tablets [Concomitant]

REACTIONS (4)
  - COVID-19 [None]
  - Therapy interrupted [None]
  - Myalgia [None]
  - Pain [None]

NARRATIVE: CASE EVENT DATE: 20230224
